FAERS Safety Report 19774780 (Version 1)
Quarter: 2021Q3

REPORT INFORMATION
  Report Type: Spontaneous
  Country: US (occurrence: US)
  Receive Date: 20210901
  Receipt Date: 20210901
  Transmission Date: 20211014
  Serious: Yes (Other)
  Sender: FDA-Public Use
  Company Number: US-MYLANLABS-2021M1057142

PATIENT
  Age: 74 Year
  Sex: Male
  Weight: 120 kg

DRUGS (6)
  1. MUSE [Suspect]
     Active Substance: ALPROSTADIL
     Indication: ERECTILE DYSFUNCTION
     Dosage: 1000 MICROGRAM, ONCE
     Route: 066
     Dates: start: 20210825
  2. CYMBALTA [Concomitant]
     Active Substance: DULOXETINE HYDROCHLORIDE
     Dosage: 60 MILLIGRAM, QD
  3. INSULIN ASPART [Concomitant]
     Active Substance: INSULIN ASPART
     Dosage: UNK
  4. LITHIUM. [Concomitant]
     Active Substance: LITHIUM
     Dosage: 300 MILLIGRAM, QD, SUSTAINED RELEASE
  5. CLOPIDOGREL [Concomitant]
     Active Substance: CLOPIDOGREL BISULFATE
     Dosage: 75 MILLIGRAM, QD
  6. LANTUS [Concomitant]
     Active Substance: INSULIN GLARGINE
     Dosage: UNK

REACTIONS (3)
  - Penile pain [Recovered/Resolved]
  - Wrong technique in product usage process [Unknown]
  - Drug ineffective [Not Recovered/Not Resolved]

NARRATIVE: CASE EVENT DATE: 20210825
